FAERS Safety Report 20178507 (Version 5)
Quarter: 2022Q1

REPORT INFORMATION
  Report Type: Report from Study
  Country: US (occurrence: US)
  Receive Date: 20211214
  Receipt Date: 20220301
  Transmission Date: 20220423
  Serious: No
  Sender: FDA-Public Use
  Company Number: US-BIOVITRUM-2021US11114

PATIENT
  Age: 55 Year
  Sex: Male

DRUGS (5)
  1. DOPTELET [Suspect]
     Active Substance: AVATROMBOPAG MALEATE
     Indication: Malignant neoplasm of choroid
     Route: 048
     Dates: start: 20211111
  2. DOPTELET [Suspect]
     Active Substance: AVATROMBOPAG MALEATE
     Indication: Thrombocytopenic purpura
     Dates: start: 20211220
  3. DOPTELET [Suspect]
     Active Substance: AVATROMBOPAG MALEATE
     Route: 048
     Dates: start: 20211112
  4. DOPTELET [Suspect]
     Active Substance: AVATROMBOPAG MALEATE
     Route: 048
     Dates: start: 20211230
  5. DOPTELET [Suspect]
     Active Substance: AVATROMBOPAG MALEATE
     Route: 048
     Dates: start: 20211112

REACTIONS (10)
  - Laboratory test abnormal [Unknown]
  - Seasonal allergy [Unknown]
  - Sputum increased [Unknown]
  - Pruritus [Unknown]
  - Full blood count abnormal [Unknown]
  - Full blood count decreased [Unknown]
  - Headache [Unknown]
  - Arthralgia [Unknown]
  - Hypersensitivity [Unknown]
  - Off label use [Unknown]

NARRATIVE: CASE EVENT DATE: 20211111
